FAERS Safety Report 20077084 (Version 4)
Quarter: 2022Q3

REPORT INFORMATION
  Report Type: Spontaneous
  Country: JP (occurrence: JP)
  Receive Date: 20211116
  Receipt Date: 20220801
  Transmission Date: 20221027
  Serious: Yes (Other)
  Sender: FDA-Public Use
  Company Number: JP-SANOFI-2021SA109265

PATIENT
  Age: 1 Year
  Sex: Female
  Weight: 8.3 kg

DRUGS (24)
  1. SABRIL [Suspect]
     Active Substance: VIGABATRIN
     Indication: Infantile spasms
     Dosage: 600 MG, BID
     Route: 048
     Dates: start: 20200523, end: 20210930
  2. SABRIL [Suspect]
     Active Substance: VIGABATRIN
     Dosage: 150 MG, BID
     Route: 048
     Dates: start: 20200327, end: 20200331
  3. SABRIL [Suspect]
     Active Substance: VIGABATRIN
     Dosage: 150 MG IN THE MORNING, 300 MG IN THE EVENING, BID
     Route: 048
     Dates: start: 20200401, end: 20200401
  4. SABRIL [Suspect]
     Active Substance: VIGABATRIN
     Dosage: 300 MG, BID
     Route: 048
     Dates: start: 20200402, end: 20200407
  5. SABRIL [Suspect]
     Active Substance: VIGABATRIN
     Dosage: 300 MG IN THE MORNING, 450 MG IN THE EVENING, BID
     Route: 048
     Dates: start: 20200408, end: 20200408
  6. SABRIL [Suspect]
     Active Substance: VIGABATRIN
     Dosage: 450 MG, BID
     Route: 048
     Dates: start: 20200409, end: 20200521
  7. SABRIL [Suspect]
     Active Substance: VIGABATRIN
     Dosage: 450 MG IN THE MORNING, 600 MG IN THE EVENING, BID
     Route: 048
     Dates: start: 20200522, end: 20200522
  8. SABRIL [Suspect]
     Active Substance: VIGABATRIN
     Dosage: 400 MG, BID
     Route: 048
     Dates: start: 20210930, end: 20211222
  9. SABRIL [Suspect]
     Active Substance: VIGABATRIN
     Dosage: 200 MG, BID
     Route: 048
     Dates: start: 20211222, end: 20220318
  10. ZONISAMIDE [Concomitant]
     Active Substance: ZONISAMIDE
     Indication: Infantile spasms
     Dosage: DAILY DOSE 300 MG
     Route: 048
     Dates: start: 20200415, end: 20200417
  11. ZONISAMIDE [Concomitant]
     Active Substance: ZONISAMIDE
     Dosage: DAILY DOSE 45 MG
     Route: 048
     Dates: start: 20200418
  12. PROPOFOL [Concomitant]
     Active Substance: PROPOFOL
     Indication: Prophylaxis
     Dosage: DAILY DOSE 60 MG
     Route: 042
     Dates: start: 20200326, end: 20200326
  13. PROPOFOL [Concomitant]
     Active Substance: PROPOFOL
     Indication: Investigation
     Dosage: DAILY DOSE 21 MG
     Route: 042
     Dates: start: 20200424, end: 20200424
  14. PROPOFOL [Concomitant]
     Active Substance: PROPOFOL
     Dosage: DAILY DOSE 40 MG
     Route: 042
     Dates: start: 20200811, end: 20200811
  15. PROPOFOL [Concomitant]
     Active Substance: PROPOFOL
     Dosage: DAILY DOSE 44 MG
     Route: 042
     Dates: start: 20200910, end: 20200910
  16. PROPOFOL [Concomitant]
     Active Substance: PROPOFOL
     Dosage: DAILY DOSE 20 MG
     Route: 042
     Dates: start: 20210104, end: 20210104
  17. VALPROATE SODIUM [Concomitant]
     Active Substance: VALPROATE SODIUM
     Indication: Product used for unknown indication
     Dosage: 100 MG/DAY
     Route: 065
     Dates: start: 20210225
  18. VALPROATE SODIUM [Concomitant]
     Active Substance: VALPROATE SODIUM
     Dosage: 200 MG/DAY
     Route: 048
     Dates: start: 20210310
  19. VALPROATE SODIUM [Concomitant]
     Active Substance: VALPROATE SODIUM
     Dosage: 300 MG/DAY
     Route: 048
     Dates: start: 20210406
  20. LAMOTRIGINE [Concomitant]
     Active Substance: LAMOTRIGINE
     Indication: Infantile spasms
     Dosage: UNK
     Route: 048
     Dates: start: 20210512
  21. LAMOTRIGINE [Concomitant]
     Active Substance: LAMOTRIGINE
     Dosage: 2 MG
     Route: 048
     Dates: start: 20210526
  22. LAMOTRIGINE [Concomitant]
     Active Substance: LAMOTRIGINE
     Dosage: 4 MG
     Route: 048
     Dates: start: 20210708
  23. AFINITOR [Concomitant]
     Active Substance: EVEROLIMUS
     Indication: Infantile spasms
     Dosage: 2 MG/DAY
     Route: 048
     Dates: start: 20201217
  24. AFINITOR [Concomitant]
     Active Substance: EVEROLIMUS
     Dosage: 3 MG/DAY
     Route: 048
     Dates: start: 20210127

REACTIONS (3)
  - Varicella [Recovered/Resolved]
  - Magnetic resonance imaging head abnormal [Recovering/Resolving]
  - Otitis media [Recovered/Resolved]

NARRATIVE: CASE EVENT DATE: 20200713
